FAERS Safety Report 8442238-2 (Version None)
Quarter: 2012Q2

REPORT INFORMATION
  Report Type: 
  Country: None (occurrence: None)
  Receive Date: 20120615
  Receipt Date: 20120315
  Transmission Date: 20120825
  Serious: Yes (Hospitalization)
  Sender: FDA-Public Use
  Company Number: FR-BAXTER-2012BH007839

PATIENT
  Sex: Male

DRUGS (9)
  1. VEPESID [Suspect]
     Indication: LYMPHOMA
     Route: 042
     Dates: start: 20110329, end: 20110725
  2. CELECTOL [Concomitant]
     Route: 065
  3. PERINDOPRIL ERBUMINE [Concomitant]
     Route: 065
  4. MABTHERA [Suspect]
     Indication: LYMPHOMA
     Route: 042
     Dates: start: 20110329, end: 20110912
  5. CYCLOPHOSPHAMIDE [Suspect]
     Indication: LYMPHOMA
     Route: 042
     Dates: start: 20110329, end: 20110725
  6. DOXORUBICIN HCL [Suspect]
     Indication: LYMPHOMA
     Route: 042
     Dates: start: 20110329, end: 20110725
  7. DICLOFENAC SODIUM [Concomitant]
     Route: 065
  8. ATORVASTATIN CALCIUM [Concomitant]
     Route: 065
  9. PLAVIX [Concomitant]
     Route: 065

REACTIONS (2)
  - CONDITION AGGRAVATED [None]
  - LUNG ADENOCARCINOMA [None]
